FAERS Safety Report 7764455-7 (Version None)
Quarter: 2011Q3

REPORT INFORMATION
  Report Type: 
  Country: None (occurrence: None)
  Receive Date: 20110919
  Receipt Date: 20110909
  Transmission Date: 20111222
  Serious: Yes (Other)
  Sender: FDA-Public Use
  Company Number: 2011MA013475

PATIENT
  Age: 19 Year
  Sex: Female

DRUGS (2)
  1. CITALOPRAM [Concomitant]
  2. VENLAFAXINE HYDROCHLORIDE [Suspect]
     Indication: DEPRESSION
     Dosage: 75 MG;
     Dates: start: 20110729, end: 20110802

REACTIONS (7)
  - PHOTOPHOBIA [None]
  - SEDATION [None]
  - PYREXIA [None]
  - HEADACHE [None]
  - PRURITUS [None]
  - ERYTHEMA [None]
  - VIRAL INFECTION [None]
